FAERS Safety Report 13895896 (Version 1)
Quarter: 2017Q3

REPORT INFORMATION
  Report Type: Spontaneous
  Country: US (occurrence: US)
  Receive Date: 20170823
  Receipt Date: 20170823
  Transmission Date: 20171127
  Serious: No
  Sender: FDA-Public Use
  Company Number: US-PFIZER INC-2017360215

PATIENT
  Age: 43 Year
  Sex: Female
  Weight: 40 kg

DRUGS (1)
  1. PREMARIN [Suspect]
     Active Substance: ESTROGENS, CONJUGATED
     Indication: HORMONE REPLACEMENT THERAPY
     Dosage: 0.5 G, TWICE WEEKLY AT BEDTIME
     Route: 067
     Dates: start: 201701

REACTIONS (3)
  - Vaginal haemorrhage [Unknown]
  - Bacterial vaginosis [Recovered/Resolved]
  - Vulvovaginal burning sensation [Unknown]
